FAERS Safety Report 12621609 (Version 1)
Quarter: 2016Q3

REPORT INFORMATION
  Report Type: Spontaneous
  Country: BR (occurrence: BR)
  Receive Date: 20160804
  Receipt Date: 20160804
  Transmission Date: 20161109
  Serious: Yes (Hospitalization, Other)
  Sender: FDA-Public Use
  Company Number: BR-009507513-1608BRA000853

PATIENT
  Age: 73 Year
  Sex: Female
  Weight: 84 kg

DRUGS (5)
  1. LOSARTAN POTASSIUM. [Suspect]
     Active Substance: LOSARTAN POTASSIUM
     Indication: HYPERTENSION
     Dosage: 50 MG, EVERY 12 HOURS
     Route: 048
     Dates: start: 2011
  2. HIGROTON [Concomitant]
     Active Substance: CHLORTHALIDONE
     Indication: HYPERTENSION
     Dosage: 12.5 MG, QD
     Route: 048
     Dates: start: 2011
  3. DIAMICRON [Concomitant]
     Active Substance: GLICLAZIDE
     Indication: DIABETES MELLITUS
     Dosage: ONE TABLET DAILY
     Route: 048
  4. GLIFAGE [Concomitant]
     Active Substance: METFORMIN HYDROCHLORIDE
     Indication: DIABETES MELLITUS
     Dosage: 500 MG, QD
     Route: 048
  5. DESALEX [Suspect]
     Active Substance: DESLORATADINE
     Dosage: UNK
     Route: 048

REACTIONS (3)
  - Pneumonia [Unknown]
  - Cataract [Unknown]
  - Arrhythmia [Unknown]

NARRATIVE: CASE EVENT DATE: 2011
